FAERS Safety Report 7393356-1 (Version None)
Quarter: 2011Q2

REPORT INFORMATION
  Report Type: 
  Country: None (occurrence: None)
  Receive Date: 20110405
  Receipt Date: 20110330
  Transmission Date: 20111010
  Serious: No
  Sender: FDA-Public Use
  Company Number: US-BIOGENIDEC-2011BI012047

PATIENT
  Age: 45 Year
  Sex: Female

DRUGS (1)
  1. TYSABRI [Suspect]
     Indication: MULTIPLE SCLEROSIS
     Route: 042
     Dates: start: 20100716

REACTIONS (4)
  - INTERVERTEBRAL DISC PROTRUSION [None]
  - DEPRESSION [None]
  - GASTROINTESTINAL DISORDER [None]
  - BLADDER DISORDER [None]
